FAERS Safety Report 8611735 (Version 17)
Quarter: 2016Q4

REPORT INFORMATION
  Report Type: Spontaneous
  Country: US (occurrence: US)
  Receive Date: 20120613
  Receipt Date: 20161227
  Transmission Date: 20170207
  Serious: Yes (Hospitalization, Other)
  Sender: FDA-Public Use
  Company Number: US-SANOFI-AVENTIS-2012SA041834

PATIENT
  Age: 75 Year
  Sex: Female
  Weight: 86 kg

DRUGS (73)
  1. PANTOPRAZOLE [Concomitant]
     Active Substance: PANTOPRAZOLE SODIUM
     Dosage: 40 MG VIAL
  2. SODIUM CHLORIDE. [Concomitant]
     Active Substance: SODIUM CHLORIDE
     Dosage: 0.9% LOOOML
  3. ALPRAZOLAM. [Concomitant]
     Active Substance: ALPRAZOLAM
     Dosage: 0.5 MG
  4. GADOPENTETATE DIMEGLUMINE. [Concomitant]
     Active Substance: GADOPENTETATE DIMEGLUMINE
     Dosage: 46.9% (20 ML)
  5. PROPOFOL. [Concomitant]
     Active Substance: PROPOFOL
     Dosage: PROPOFOL INJ 10  MG/ML (20 ML)
     Route: 042
  6. BENADRYL [Concomitant]
     Active Substance: DIPHENHYDRAMINE HYDROCHLORIDE
  7. NAPROSYN [Concomitant]
     Active Substance: NAPROXEN
     Dosage: STRENGTH: 500 MG?DOSE:TAKE 1 PO BID PRN PAIN
     Route: 048
  8. PLAVIX [Suspect]
     Active Substance: CLOPIDOGREL BISULFATE
     Indication: PERIPHERAL ARTERIAL OCCLUSIVE DISEASE
     Route: 048
     Dates: start: 20101028, end: 20101106
  9. OXYGEN. [Concomitant]
     Active Substance: OXYGEN
     Dosage: SIX HOURS
  10. HYALURONIDASE [Concomitant]
     Active Substance: HYALURONIDASE
     Dosage: 150  U/1  ML   INJ
  11. DOCUSATE SODIUM. [Concomitant]
     Active Substance: DOCUSATE SODIUM
     Dosage: 100 MG/10 ML
  12. HYDROCHLOROTHIAZIDE. [Concomitant]
     Active Substance: HYDROCHLOROTHIAZIDE
     Dosage: 25 MG TAB
  13. AZITHROMYCIN ANHYDROUS. [Concomitant]
     Active Substance: AZITHROMYCIN ANHYDROUS
     Dosage: 500MG-DEX  250ML
  14. CIPROFLOXACIN. [Concomitant]
     Active Substance: CIPROFLOXACIN
     Dosage: 400  MG/200  ML   BAG
  15. BUPIVACAINE/EPINEPHRINE [Concomitant]
     Dosage: 0.5%-L:200K INJ (50BACITRACIN IM FOR SOLN; BACITRACIN INJ 50,000 UNIT
  16. HYDROMORPHONE HYDROCHLORIDE. [Concomitant]
     Active Substance: HYDROMORPHONE HYDROCHLORIDE
     Dosage: 2 MG/ML (1 ML)
  17. NEXIUM [Concomitant]
     Active Substance: ESOMEPRAZOLE MAGNESIUM
  18. ZYRTEC [Concomitant]
     Active Substance: CETIRIZINE HYDROCHLORIDE
     Route: 048
  19. CELEBREX [Concomitant]
     Active Substance: CELECOXIB
     Route: 048
  20. LEXAPRO [Concomitant]
     Active Substance: ESCITALOPRAM OXALATE
     Route: 048
  21. TRANDATE [Concomitant]
     Active Substance: LABETALOL HYDROCHLORIDE
     Route: 042
  22. ENALAPRILAT. [Concomitant]
     Active Substance: ENALAPRILAT
     Dosage: 1.25 MG/ML VIAL
  23. CEFAZOLIN [Concomitant]
     Active Substance: CEFAZOLIN
     Dosage: 1 GM
  24. SIMETHICONE (DIMETHICONE) [Concomitant]
     Active Substance: DIMETHICONE
     Dosage: 40 MG/0.6 ML
     Route: 048
  25. IPRATROPIUM [Concomitant]
     Active Substance: IPRATROPIUM
     Dosage: NEB SOLN 0.2 MG/ML
  26. TAZOBACTAM/PIPERACILLIN [Concomitant]
     Dosage: 3.375  GM
  27. DEXAMETHASONE. [Concomitant]
     Active Substance: DEXAMETHASONE
     Dosage: 4 MG/ML
  28. ONDANSETRON HYDROCHLORIDE. [Concomitant]
     Active Substance: ONDANSETRON HYDROCHLORIDE
     Dosage: 2 MG/ML (2 ML)
  29. LIPITOR [Concomitant]
     Active Substance: ATORVASTATIN CALCIUM
     Route: 048
  30. HISTUSSIN HC [Concomitant]
     Active Substance: CHLORPHENIRAMINE MALEATE\HYDROCODONE BITARTRATE\PHENYLEPHRINE HYDROCHLORIDE
     Dosage: DOSE: 2 MG -2.5 MG -5 MG /5 ML, 1 TSP QID, PRN
  31. HYDROCODONE [Concomitant]
     Active Substance: HYDROCODONE
     Dosage: DOSE DETAIL: 5 MG -25 MG /5 ML
     Route: 048
  32. FLUCONAZOLE. [Concomitant]
     Active Substance: FLUCONAZOLE
     Dosage: 100MG/50ML IV SOLN;?FLUCONAZOLE/NACL 100 MG
     Route: 042
  33. BISACODYL. [Concomitant]
     Active Substance: BISACODYL
     Dosage: SUP 10 MG
  34. LEVALBUTEROL HYDROCHLORIDE. [Concomitant]
     Active Substance: LEVALBUTEROL HYDROCHLORIDE
     Dosage: 1.25 MG/3 ML
  35. OSELTAMIVIR PHOSPHATE. [Concomitant]
     Active Substance: OSELTAMIVIR PHOSPHATE
     Dosage: 75 MG
  36. MANNITOL. [Concomitant]
     Active Substance: MANNITOL
     Dosage: 20% 500 ML BAG
  37. FENTANYL CITRATE. [Concomitant]
     Active Substance: FENTANYL CITRATE
     Dosage: 50 MCG/ML (2ML)
  38. VITAMIN E [Concomitant]
     Active Substance: .ALPHA.-TOCOPHEROL
  39. DIPHENHYDRAMINE HYDROCHLORIDE. [Concomitant]
     Active Substance: DIPHENHYDRAMINE HYDROCHLORIDE
     Dosage: 50  MG/ML  VIAL
  40. VITAMIN C [Concomitant]
     Active Substance: ASCORBIC ACID
     Dosage: 500 MG
  41. BUDESONIDE. [Concomitant]
     Active Substance: BUDESONIDE
     Dosage: 0.5  MG/2  ML
  42. CHLORELLA VULGARIS [Concomitant]
     Active Substance: CHLORELLA VULGARIS
  43. CLARITIN [Concomitant]
     Active Substance: LORATADINE
     Dosage: FREQUENCY: TAKE AS DIRECTED
  44. METOPROLOL TARTRATE. [Concomitant]
     Active Substance: METOPROLOL TARTRATE
     Route: 048
  45. METOCLOPRAMIDE. [Concomitant]
     Active Substance: METOCLOPRAMIDE
     Dosage: HCL 10 MG/2 ML VIAL
  46. LOVENOX [Concomitant]
     Active Substance: ENOXAPARIN SODIUM
     Dosage: 30  MG/0.3  ML   SYR
  47. POTASSIUM CHLORIDE. [Concomitant]
     Active Substance: POTASSIUM CHLORIDE
     Dosage: 20 ?MEQ TABCR
  48. MECLIZINE HYDROCHLORIDE. [Concomitant]
     Active Substance: MECLIZINE HYDROCHLORIDE
     Dosage: 25 MG
  49. LEVOFLOXACIN. [Concomitant]
     Active Substance: LEVOFLOXACIN
  50. RHINOCORT AQUA [Concomitant]
     Active Substance: BUDESONIDE
     Dosage: DOSE: 0.032 MG /INH, TAKE AS DIRECTED
  51. TOPROL XL [Concomitant]
     Active Substance: METOPROLOL SUCCINATE
     Dosage: STRENGTH: 50 MG
     Route: 048
  52. ASPIRIN. [Concomitant]
     Active Substance: ASPIRIN
     Route: 048
  53. ZOFRAN [Concomitant]
     Active Substance: ONDANSETRON HYDROCHLORIDE
  54. VASOTEC [Concomitant]
     Active Substance: ENALAPRIL MALEATE
     Route: 042
  55. LABETALOL HYDROCHLORIDE. [Concomitant]
     Active Substance: LABETALOL HYDROCHLORIDE
     Dosage: LABETALOL HCL 5 MG/ML 2 0 ML VIAL
  56. MORPHINE [Concomitant]
     Active Substance: MORPHINE
     Dosage: 5MG/ML VIAL
  57. ALBUTEROL. [Concomitant]
     Active Substance: ALBUTEROL
     Dosage: ALBUTEROL NEB SOLN 5 MG/ML
  58. CEFTRIAXONE. [Concomitant]
     Active Substance: CEFTRIAXONE
     Dosage: 1 GM-DEX   5%   50  ML
  59. VITAMIN D [Concomitant]
     Active Substance: CHOLECALCIFEROL
     Dosage: 400 INTLU TAB
  60. CLINDAMYCIN HYDROCHLORIDE. [Concomitant]
     Active Substance: CLINDAMYCIN HYDROCHLORIDE
     Dosage: 900 MG/50 ML BAG
  61. LEVETIRACETAM. [Concomitant]
     Active Substance: LEVETIRACETAM
     Dosage: 100 MG/ML VIAL
  62. AMOXICILLIN. [Concomitant]
     Active Substance: AMOXICILLIN
  63. CEPHALEXIN. [Concomitant]
     Active Substance: CEPHALEXIN
  64. PROTONIX [Concomitant]
     Active Substance: PANTOPRAZOLE SODIUM
  65. PNEUMOCOCCAL VACCINE POLYVALENT NOS [Concomitant]
     Active Substance: PNEUMOCOCCAL VACCINE POLYVALENT
     Dosage: 25 MCC/0.5 ML
  66. AMBIEN [Concomitant]
     Active Substance: ZOLPIDEM TARTRATE
     Dosage: 5 MG
  67. NYSTATIN. [Concomitant]
     Active Substance: NYSTATIN
     Dosage: 100,000 UNIT/ML LIQ 5 ML U
  68. ACETAMINOPHEN. [Concomitant]
     Active Substance: ACETAMINOPHEN
     Dosage: 650 MG ?SUPP
  69. CLONAZEPAM. [Concomitant]
     Active Substance: CLONAZEPAM
     Dosage: 0.5 MG
  70. ALBUTEROL SULFATE. [Concomitant]
     Active Substance: ALBUTEROL SULFATE
     Dosage: DOSING DETAIL: 90 MCG /INH, 2 PUFFS Q4H
  71. ADVAIR DISKUS [Concomitant]
     Active Substance: FLUTICASONE PROPIONATE\SALMETEROL XINAFOATE
     Dosage: DOSE DETAIL: 100 MCG -50 MCG, 1 PUFF Q 12
  72. ASTELIN [Concomitant]
     Active Substance: AZELASTINE HYDROCHLORIDE
  73. LORTAB [Concomitant]
     Active Substance: ACETAMINOPHEN\HYDROCODONE BITARTRATE
     Dosage: DOSE: 5/500 500 MG -5 MG, TAKE 1 -2 PO TID PRN PAIN

REACTIONS (5)
  - Pupils unequal [Unknown]
  - Multiple injuries [Unknown]
  - Haemorrhagic stroke [Unknown]
  - Dysarthria [Unknown]
  - Hemiplegia [Unknown]

NARRATIVE: CASE EVENT DATE: 20101106
